FAERS Safety Report 8765906 (Version 1)
Quarter: 2012Q4

REPORT INFORMATION
  Report Type: 
  Country: BR (occurrence: BR)
  Receive Date: 20120904
  Receipt Date: 20120904
  Transmission Date: 20130627
  Serious: Yes (Other)
  Sender: FDA-Public Use
  Company Number: PHHY2012BR075631

PATIENT
  Age: 91 Year
  Sex: Female

DRUGS (2)
  1. AMINOPHYLLINE [Suspect]
  2. AMINOPHYLLINE [Suspect]

REACTIONS (5)
  - Emphysema [Unknown]
  - Malaise [Unknown]
  - Drug ineffective [Unknown]
  - Product quality issue [None]
  - Product substitution issue [None]
